FAERS Safety Report 9456022 (Version 1)
Quarter: 2013Q3

REPORT INFORMATION
  Report Type: Report from Study
  Country: FR (occurrence: FR)
  Receive Date: 20130813
  Receipt Date: 20130813
  Transmission Date: 20140515
  Serious: Yes (Other)
  Sender: FDA-Public Use
  Company Number: FR-VERTEX PHARMACEUTICALS INC-2013-003286

PATIENT
  Sex: Female

DRUGS (4)
  1. INCIVO [Suspect]
     Indication: HEPATITIS C
     Dosage: TABLET, BID, TABLET
     Route: 065
     Dates: start: 20130225
  2. RIBAVIRIN [Suspect]
     Indication: PRODUCT USED FOR UNKNOWN INDICATION
     Dosage: UNK
     Route: 065
     Dates: start: 20130225
  3. INTERFERON [Suspect]
     Indication: PRODUCT USED FOR UNKNOWN INDICATION
     Dosage: UNK
     Route: 065
     Dates: start: 20130225
  4. NEXIUM [Concomitant]
     Indication: ULCER
     Route: 065

REACTIONS (47)
  - Anaemia [Unknown]
  - Syncope [Unknown]
  - Epistaxis [Unknown]
  - Cough [Unknown]
  - Pallor [Unknown]
  - Fatigue [Unknown]
  - Abdominal pain [Recovered/Resolved]
  - Dry mouth [Recovered/Resolved]
  - Emotional distress [Unknown]
  - Vertigo [Recovered/Resolved]
  - Nasal dryness [Unknown]
  - Dyspnoea [Unknown]
  - Weight increased [Unknown]
  - Gingival bleeding [Unknown]
  - Gingival swelling [Unknown]
  - Myalgia [Unknown]
  - Headache [Unknown]
  - Depression [Unknown]
  - Photophobia [Recovered/Resolved]
  - Painful respiration [Unknown]
  - Visual acuity reduced [Unknown]
  - Eye pruritus [Unknown]
  - Perfume sensitivity [Unknown]
  - Abdominal distension [Unknown]
  - Constipation [Unknown]
  - Haemorrhage [Unknown]
  - Dysuria [Unknown]
  - Pain [Unknown]
  - Foreign body sensation in eyes [Recovered/Resolved]
  - Alopecia [Unknown]
  - Off label use [Unknown]
  - Acne [Not Recovered/Not Resolved]
  - Hair texture abnormal [Unknown]
  - Speech disorder [Unknown]
  - Trichorrhexis [Unknown]
  - Burning sensation [Unknown]
  - Chills [Recovered/Resolved]
  - Food aversion [Unknown]
  - Dysgeusia [Recovered/Resolved]
  - Blood bilirubin increased [Unknown]
  - Pruritus [Unknown]
  - Eczema [Unknown]
  - Nausea [Recovered/Resolved]
  - Pruritus [Not Recovered/Not Resolved]
  - Painful defaecation [Unknown]
  - Therapy responder [Unknown]
  - Vomiting [Unknown]
